FAERS Safety Report 19586066 (Version 1)
Quarter: 2021Q3

REPORT INFORMATION
  Report Type: Spontaneous
  Country: US (occurrence: US)
  Receive Date: 20210721
  Receipt Date: 20210721
  Transmission Date: 20211014
  Serious: Yes (Life-Threatening, Hospitalization)
  Sender: FDA-Public Use
  Company Number: US-VIFOR (INTERNATIONAL) INC.-VIT-2021-05994

PATIENT
  Age: 47 Year
  Sex: Male
  Weight: 78.7 kg

DRUGS (1)
  1. MIRCERA [Suspect]
     Active Substance: METHOXY POLYETHYLENE GLYCOL-EPOETIN BETA
     Indication: ANAEMIA
     Route: 040
     Dates: start: 20210712, end: 20210712

REACTIONS (5)
  - Pulse absent [Recovered/Resolved]
  - Apnoea [Recovered/Resolved]
  - Muscle rigidity [Recovered/Resolved]
  - Blood pressure systolic decreased [Recovered/Resolved]
  - Drug hypersensitivity [Unknown]

NARRATIVE: CASE EVENT DATE: 20210712
